FAERS Safety Report 7258975-1 (Version None)
Quarter: 2011Q1

REPORT INFORMATION
  Report Type: 
  Country: None (occurrence: None)
  Receive Date: 20110129
  Receipt Date: 20100714
  Transmission Date: 20110831
  Serious: Yes (Other)
  Sender: FDA-Public Use
  Company Number: US-ABBOTT-10P-163-0653015-00

PATIENT
  Age: 38 Year
  Sex: Female
  Weight: 66.284 kg

DRUGS (10)
  1. HUMIRA [Suspect]
     Indication: CROHN'S DISEASE
     Dates: start: 20080801, end: 20100512
  2. FOLIC ACID [Concomitant]
     Indication: PRODUCT USED FOR UNKNOWN INDICATION
  3. VITAMIN 12 [Concomitant]
     Indication: CROHN'S DISEASE
  4. IMM (UNKNOWN) [Concomitant]
     Indication: DIARRHOEA
  5. CITALOPRAM [Concomitant]
     Indication: CROHN'S DISEASE
  6. CITALOPRAM [Concomitant]
     Indication: ANXIETY
     Route: 048
  7. CITALOPRAM [Concomitant]
     Indication: PROPHYLAXIS
  8. CITALOPRAM [Concomitant]
     Indication: DYSPEPSIA
  9. QUASENSE [Concomitant]
     Indication: CONTRACEPTION
     Dosage: FOR 91 DAYS ORAL BIRTH CONTROL
     Route: 048
  10. METHOTREXATE [Concomitant]
     Indication: PRODUCT USED FOR UNKNOWN INDICATION

REACTIONS (8)
  - LUPUS-LIKE SYNDROME [None]
  - ARTHRITIS [None]
  - RASH PUSTULAR [None]
  - GENERALISED OEDEMA [None]
  - JOINT SWELLING [None]
  - SKIN LESION [None]
  - RASH ERYTHEMATOUS [None]
  - ROSACEA [None]
